FAERS Safety Report 4615883-X (Version None)
Quarter: 2005Q1

REPORT INFORMATION
  Report Type: 
  Country: None (occurrence: None)
  Receive Date: 20050317
  Receipt Date: 20050228
  Transmission Date: 20050727
  Serious: Yes (Hospitalization)
  Sender: FDA-Public Use
  Company Number: GXKR2005GB00674

PATIENT
  Age: 34 Year
  Sex: Female

DRUGS (1)
  1. PARACETAMOL (NGX) (PARACETAMOL) [Suspect]
     Indication: MEDICATION ERROR
     Dosage: OVERDOSE: 150 G (300 TABLETS), ORAL
     Route: 048

REACTIONS (16)
  - AGGRESSION [None]
  - ALANINE AMINOTRANSFERASE INCREASED [None]
  - BLOOD AMYLASE INCREASED [None]
  - BLOOD CHLORIDE INCREASED [None]
  - BLOOD GLUCOSE INCREASED [None]
  - BLOOD PHOSPHORUS DECREASED [None]
  - CLONUS [None]
  - COMA [None]
  - ELECTROENCEPHALOGRAM ABNORMAL [None]
  - HAEMODIALYSIS [None]
  - HYPERREFLEXIA [None]
  - HYPOTENSION [None]
  - INTENTIONAL MISUSE [None]
  - METABOLIC ACIDOSIS [None]
  - PROTHROMBIN TIME PROLONGED [None]
  - SOMNOLENCE [None]
